FAERS Safety Report 7449988-5 (Version None)
Quarter: 2011Q2

REPORT INFORMATION
  Report Type: 
  Country: None (occurrence: None)
  Receive Date: 20110502
  Receipt Date: 20110420
  Transmission Date: 20111010
  Serious: Yes (Other)
  Sender: FDA-Public Use
  Company Number: ES-ELI_LILLY_AND_COMPANY-ES201104005755

PATIENT
  Sex: Female
  Weight: 87 kg

DRUGS (6)
  1. VENORUTON                          /00055501/ [Concomitant]
     Indication: ANGIOPATHY
     Dosage: 1 DF, QD
     Route: 048
  2. OMEPRAZOL [Concomitant]
     Indication: GASTRIC DISORDER
     Dosage: 40 MG, QD
     Route: 048
  3. SINVASTATINA [Concomitant]
     Indication: HYPERCHOLESTEROLAEMIA
     Dosage: 1 DF, QD
     Route: 048
  4. HEMOVAS [Concomitant]
     Indication: ANGIOPATHY
     Dosage: 600 MG, BID
     Route: 048
  5. FORTEO [Suspect]
     Indication: OSTEOPOROSIS
     Dosage: 20 UG, QD
     Route: 058
     Dates: start: 20100531, end: 20110301
  6. APROVEL [Concomitant]
     Indication: HYPERTENSION
     Dosage: 1 DF, QD
     Route: 048

REACTIONS (3)
  - DRUG INEFFECTIVE [None]
  - BREAST CANCER [None]
  - WEIGHT DECREASED [None]
